FAERS Safety Report 6897979-5 (Version None)
Quarter: 2010Q3

REPORT INFORMATION
  Report Type: 
  Country: None (occurrence: None)
  Receive Date: 20100802
  Receipt Date: 20100619
  Transmission Date: 20110219
  Serious: Yes (Death, Other)
  Sender: FDA-Public Use
  Company Number: US-BAXTER-2009BH016669

PATIENT
  Age: 67 Year
  Sex: Female
  Weight: 77 kg

DRUGS (35)
  1. HEPARIN SODIUM [Suspect]
     Indication: AORTIC ANEURYSM REPAIR
     Route: 058
     Dates: start: 20071019, end: 20071019
  2. HEPARIN SODIUM [Suspect]
     Indication: ARTERIAL BYPASS OPERATION
     Route: 058
     Dates: start: 20071019, end: 20071019
  3. HEPARIN SODIUM [Suspect]
     Indication: HAEMODIALYSIS
     Route: 058
     Dates: start: 20071019, end: 20071019
  4. HEPARIN SODIUM [Suspect]
     Route: 042
     Dates: start: 20071019, end: 20071021
  5. HEPARIN SODIUM [Suspect]
     Route: 042
     Dates: start: 20071019, end: 20071021
  6. HEPARIN SODIUM [Suspect]
     Route: 042
     Dates: start: 20071019, end: 20071021
  7. HEPARIN SODIUM [Suspect]
     Route: 010
     Dates: start: 20071021, end: 20071021
  8. HEPARIN SODIUM [Suspect]
     Route: 010
     Dates: start: 20071021, end: 20071021
  9. HEPARIN SODIUM [Suspect]
     Route: 010
     Dates: start: 20071021, end: 20071021
  10. HEPARIN SODIUM [Suspect]
     Route: 042
     Dates: start: 20071019, end: 20071019
  11. HEPARIN SODIUM [Suspect]
     Route: 042
     Dates: start: 20071019, end: 20071019
  12. HEPARIN SODIUM [Suspect]
     Route: 042
     Dates: start: 20071019, end: 20071019
  13. HEPARIN SODIUM [Suspect]
     Route: 042
     Dates: start: 20071019, end: 20071019
  14. HEPARIN SODIUM [Suspect]
     Route: 042
     Dates: start: 20071019, end: 20071019
  15. HEPARIN SODIUM [Suspect]
     Route: 042
     Dates: start: 20071019, end: 20071019
  16. HEPARIN SODIUM [Suspect]
     Route: 042
     Dates: start: 20071019, end: 20071019
  17. HEPARIN SODIUM [Suspect]
     Route: 042
     Dates: start: 20071019, end: 20071019
  18. HEPARIN SODIUM [Suspect]
     Route: 042
     Dates: start: 20071019, end: 20071019
  19. HEPARIN SODIUM [Suspect]
     Route: 042
     Dates: start: 20071019, end: 20071019
  20. HEPARIN SODIUM [Suspect]
     Route: 042
     Dates: start: 20071019, end: 20071019
  21. HEPARIN SODIUM [Suspect]
     Route: 042
     Dates: start: 20071019, end: 20071019
  22. HEPARIN SODIUM [Suspect]
     Route: 050
     Dates: start: 20071019, end: 20071019
  23. HEPARIN SODIUM [Suspect]
     Route: 050
     Dates: start: 20071019, end: 20071019
  24. HEPARIN SODIUM [Suspect]
     Route: 050
     Dates: start: 20071019, end: 20071019
  25. LIPITOR [Concomitant]
     Indication: PRODUCT USED FOR UNKNOWN INDICATION
     Route: 065
  26. PREVACID [Concomitant]
     Indication: PRODUCT USED FOR UNKNOWN INDICATION
     Route: 065
  27. ISOSORBIDE MONONITRATE [Concomitant]
     Indication: PRODUCT USED FOR UNKNOWN INDICATION
     Route: 065
  28. CLONIDINE [Concomitant]
     Indication: PRODUCT USED FOR UNKNOWN INDICATION
     Route: 065
  29. BISOPROLOL FUMARATE AND HYDROCHLOROTHIAZIDE [Concomitant]
     Indication: PRODUCT USED FOR UNKNOWN INDICATION
     Route: 065
  30. AMPICILLIN [Concomitant]
     Indication: PRODUCT USED FOR UNKNOWN INDICATION
     Route: 065
  31. METRONIDAZOL ^ALPHARMA^ [Concomitant]
     Indication: PRODUCT USED FOR UNKNOWN INDICATION
     Route: 065
  32. PROPOXYPHENE NAPSYLATE W/ ACETAMINOPHEN [Concomitant]
     Indication: PRODUCT USED FOR UNKNOWN INDICATION
     Route: 065
  33. ACETYLCYSTEINE [Concomitant]
     Indication: PRODUCT USED FOR UNKNOWN INDICATION
     Route: 065
  34. HYDROCODONE BITARTRATE AND ACETAMINOPHEN [Concomitant]
     Indication: PRODUCT USED FOR UNKNOWN INDICATION
     Route: 065
  35. ASPIRIN [Concomitant]
     Indication: PRODUCT USED FOR UNKNOWN INDICATION
     Route: 065

REACTIONS (16)
  - AORTIC ANEURYSM REPAIR [None]
  - ARRHYTHMIA [None]
  - ARTERIAL BYPASS OPERATION [None]
  - BLISTER [None]
  - BLOOD PRESSURE DECREASED [None]
  - CARDIAC ARREST [None]
  - CARDIAC FAILURE [None]
  - CARDIOPULMONARY FAILURE [None]
  - CORONARY ARTERY DISEASE [None]
  - DRUG HYPERSENSITIVITY [None]
  - DYSPNOEA [None]
  - HAEMATOCHEZIA [None]
  - LUNG DISORDER [None]
  - ORGAN FAILURE [None]
  - RENAL FAILURE [None]
  - THROMBOCYTOPENIA [None]
